FAERS Safety Report 6388644-1 (Version None)
Quarter: 2009Q4

REPORT INFORMATION
  Report Type: 
  Country: None (occurrence: None)
  Receive Date: 20091005
  Receipt Date: 20090924
  Transmission Date: 20100525
  Serious: Yes (Disabling)
  Sender: FDA-Public Use
  Company Number: US-CELGENEUS-163-21880-09071086

PATIENT
  Sex: Male

DRUGS (2)
  1. REVLIMID [Suspect]
     Indication: MULTIPLE MYELOMA
     Route: 048
     Dates: start: 20090528, end: 20090101
  2. REVLIMID [Suspect]
     Route: 048
     Dates: start: 20090101

REACTIONS (5)
  - ANAEMIA [None]
  - ASTHENIA [None]
  - EPIDERMAL GROWTH FACTOR RECEPTOR DECREASED [None]
  - NEUROPATHY PERIPHERAL [None]
  - POLYURIA [None]
